FAERS Safety Report 20834571 (Version 1)
Quarter: 2022Q2

REPORT INFORMATION
  Report Type: Spontaneous
  Country: US (occurrence: None)
  Receive Date: 20220513
  Receipt Date: 20220513
  Transmission Date: 20220721
  Serious: No
  Sender: FDA-Public Use
  Company Number: None

PATIENT
  Age: 74 Year
  Sex: Female
  Weight: 88.45 kg

DRUGS (1)
  1. SIMPONI ARIA [Suspect]
     Active Substance: GOLIMUMAB
     Indication: Rheumatoid arthritis
     Dosage: INFUSE 177MG INTRAVENOUSLY ON WEEK 0 AND WEEK 4 AS DIRECTED?
     Route: 042
     Dates: start: 202106

REACTIONS (2)
  - Cholelithiasis [None]
  - Bronchitis [None]
